FAERS Safety Report 14283759 (Version 1)
Quarter: 2017Q4

REPORT INFORMATION
  Report Type: Spontaneous
  Country: US (occurrence: US)
  Receive Date: 20171213
  Receipt Date: 20171213
  Transmission Date: 20180321
  Serious: Yes (Other)
  Sender: FDA-Public Use
  Company Number: None

PATIENT
  Age: 34 Year
  Sex: Male
  Weight: 72 kg

DRUGS (1)
  1. VENTOLIN [Suspect]
     Active Substance: ALBUTEROL SULFATE
     Route: 048
     Dates: start: 20171209

REACTIONS (5)
  - Exposure via inhalation [None]
  - Accidental exposure to product packaging [None]
  - Cardio-respiratory arrest [None]
  - Anxiety [None]
  - Skin discolouration [None]

NARRATIVE: CASE EVENT DATE: 20171209
